FAERS Safety Report 24407579 (Version 2)
Quarter: 2025Q3

REPORT INFORMATION
  Report Type: Spontaneous
  Country: EU (occurrence: EU)
  Receive Date: 20241007
  Receipt Date: 20250803
  Transmission Date: 20251020
  Serious: Yes (Hospitalization)
  Sender: ALEXION PHARMACEUTICALS
  Company Number: None

PATIENT
  Age: 76 Year
  Sex: Female
  Weight: 85 kg

DRUGS (15)
  1. DAPAGLIFLOZIN [Suspect]
     Active Substance: DAPAGLIFLOZIN
     Indication: Cardiac failure chronic
     Dosage: 1X PER DAG 1 TABLET
     Dates: start: 20230517
  2. LIDOCAINE [Concomitant]
     Active Substance: LIDOCAINE
  3. Hydroquinine [Concomitant]
  4. ISOSORBIDE MONONITRATE [Concomitant]
     Active Substance: ISOSORBIDE MONONITRATE
  5. Triamcinolon [Concomitant]
  6. OMEPRAZOLE [Concomitant]
     Active Substance: OMEPRAZOLE
  7. ROSUVASTATIN [Concomitant]
     Active Substance: ROSUVASTATIN
  8. FORMOTEROL [Concomitant]
     Active Substance: FORMOTEROL
  9. VALSARTAN [Concomitant]
     Active Substance: VALSARTAN
  10. BETAHISTINE [Concomitant]
     Active Substance: BETAHISTINE
  11. LEVOTHYROXINE [Concomitant]
     Active Substance: LEVOTHYROXINE
  12. GABAPENTIN [Concomitant]
     Active Substance: GABAPENTIN
  13. ACETAMINOPHEN [Concomitant]
     Active Substance: ACETAMINOPHEN
  14. ASPIRIN [Concomitant]
     Active Substance: ASPIRIN
  15. TRAMADOL [Concomitant]
     Active Substance: TRAMADOL

REACTIONS (2)
  - Cyanosis [Not Recovered/Not Resolved]
  - Paraesthesia oral [Not Recovered/Not Resolved]
